FAERS Safety Report 10185985 (Version 1)
Quarter: 2014Q2

REPORT INFORMATION
  Report Type: Spontaneous
  Country: US (occurrence: US)
  Receive Date: 20140521
  Receipt Date: 20140521
  Transmission Date: 20141212
  Serious: No
  Sender: FDA-Public Use
  Company Number: US-PFIZER INC-2014136263

PATIENT
  Age: 50 Year
  Sex: Male
  Weight: 95.24 kg

DRUGS (9)
  1. LYRICA [Suspect]
     Indication: LIMB DISCOMFORT
     Dosage: 50 MG, 1X/DAY
     Route: 048
     Dates: start: 201311
  2. LYRICA [Suspect]
     Indication: NEURALGIA
     Dosage: 200 MG, UNK
     Route: 048
  3. LYRICA [Suspect]
     Dosage: 250 MG(200MG AT NIGHT AND 50MG DURING THE DAY)
  4. DICLOFENAC [Concomitant]
     Indication: PAIN
     Dosage: UNK
  5. DICLOFENAC [Concomitant]
     Indication: INFLAMMATION
  6. CIALIS [Concomitant]
     Indication: ERECTILE DYSFUNCTION
     Dosage: 5 MG, 2X/WEEK
     Route: 048
  7. REQUIP [Concomitant]
     Indication: RESTLESS LEGS SYNDROME
     Dosage: 0.5MG ORALLY TWO TABLETS AT NIGHT) 1X/DAY
     Route: 048
  8. AMBIEN [Concomitant]
     Indication: SLEEP DISORDER
     Dosage: UNK
  9. ATORVASTATIN [Concomitant]
     Indication: BLOOD CHOLESTEROL INCREASED
     Dosage: 20 MG, UNK

REACTIONS (3)
  - Drug ineffective [Not Recovered/Not Resolved]
  - Pain in extremity [Not Recovered/Not Resolved]
  - Pain [Not Recovered/Not Resolved]
